FAERS Safety Report 9717390 (Version 1)
Quarter: 2013Q4

REPORT INFORMATION
  Report Type: Spontaneous
  Country: US (occurrence: US)
  Receive Date: 20131127
  Receipt Date: 20131127
  Transmission Date: 20140711
  Serious: No
  Sender: FDA-Public Use
  Company Number: US-GILEAD-2008-0019550

PATIENT
  Age: 80 Year
  Sex: Female

DRUGS (7)
  1. LETAIRIS [Suspect]
     Indication: PULMONARY ARTERIAL HYPERTENSION
     Route: 048
     Dates: start: 20080626, end: 20081210
  2. COUMADIN [Concomitant]
  3. FUROSEMIDE [Concomitant]
  4. PROCARDIA [Concomitant]
  5. TOPROL XL [Concomitant]
  6. POTASSIUM [Concomitant]
  7. DARVOCET A500 [Concomitant]

REACTIONS (2)
  - Asthenia [None]
  - Dyspnoea [None]
